FAERS Safety Report 4651622-4 (Version None)
Quarter: 2005Q2

REPORT INFORMATION
  Report Type: 
  Country: None (occurrence: None)
  Receive Date: 20050502
  Receipt Date: 20050422
  Transmission Date: 20051028
  Serious: Yes (Other)
  Sender: FDA-Public Use
  Company Number: S05-USA-02072-01

PATIENT
  Age: 20 Year
  Sex: Male

DRUGS (4)
  1. LEXAPRO [Suspect]
     Indication: DEPRESSION
     Dosage: 10 MG QD PO
     Route: 048
     Dates: start: 20050401
  2. LEXAPRO [Suspect]
     Indication: DEPRESSION
     Dosage: 5 MG QD PO
     Route: 048
     Dates: start: 20050401, end: 20050401
  3. WELLBUTRIN XL [Suspect]
     Indication: DEPRESSION
     Dosage: 450 MG QD PO
     Route: 048
     Dates: start: 20050101, end: 20050421
  4. WELLBUTRIN XL [Suspect]
     Indication: DEPRESSION
     Dosage: 400 MG QD PO
     Route: 048
     Dates: end: 20050101

REACTIONS (1)
  - GRAND MAL CONVULSION [None]
